FAERS Safety Report 8609264-1 (Version None)
Quarter: 2012Q3

REPORT INFORMATION
  Report Type: 
  Country: None (occurrence: None)
  Receive Date: 20120821
  Receipt Date: 20120807
  Transmission Date: 20120928
  Serious: No
  Sender: FDA-Public Use
  Company Number: US-ASTRAZENECA-2012SE56032

PATIENT
  Age: 60 Year
  Sex: Male
  Weight: 90.7 kg

DRUGS (12)
  1. VITAMIN [Concomitant]
  2. EFFEXOR [Concomitant]
  3. CALCIUM [Concomitant]
  4. OXICOTIN [Concomitant]
  5. SPIRIVA [Concomitant]
  6. NEXIUM [Suspect]
     Route: 048
  7. NEURONTIN [Concomitant]
  8. DUCALAX [Concomitant]
  9. TYLENOL [Concomitant]
  10. SINGULAIR [Concomitant]
  11. QUINOL [Concomitant]
  12. PSEUDOEPHINEPHRINE HYDROCHLORIDE [Concomitant]

REACTIONS (10)
  - CAROTID ARTERY STENOSIS [None]
  - PAIN [None]
  - SLEEP APNOEA SYNDROME [None]
  - DYSPHAGIA [None]
  - REFLUX LARYNGITIS [None]
  - AMNESIA [None]
  - CALCINOSIS [None]
  - PALATAL DISORDER [None]
  - THYROID DISORDER [None]
  - GOITRE [None]
